FAERS Safety Report 17527425 (Version 4)
Quarter: 2020Q3

REPORT INFORMATION
  Report Type: Report from Study
  Country: None (occurrence: US)
  Receive Date: 20200310
  Receipt Date: 20200709
  Transmission Date: 20201102
  Serious: Yes (Hospitalization, Other)
  Sender: FDA-Public Use
  Company Number: US-ABBVIE-20P-163-3281151-00

PATIENT
  Age: 76 Year
  Sex: Male

DRUGS (3)
  1. IMBRUVICA [Suspect]
     Active Substance: IBRUTINIB
     Route: 048
     Dates: start: 20191227
  2. IMBRUVICA [Suspect]
     Active Substance: IBRUTINIB
     Indication: WALDENSTROM^S MACROGLOBULINAEMIA
     Route: 048
     Dates: start: 20191228
  3. IMBRUVICA [Suspect]
     Active Substance: IBRUTINIB
     Route: 048

REACTIONS (13)
  - Protein total decreased [Recovered/Resolved]
  - Musculoskeletal pain [Unknown]
  - Fall [Unknown]
  - Pain in extremity [Unknown]
  - Hypertension [Unknown]
  - Contusion [Unknown]
  - Asthenia [Unknown]
  - Mobility decreased [Unknown]
  - Back pain [Unknown]
  - Rectal haemorrhage [Unknown]
  - Arthralgia [Unknown]
  - Concussion [Unknown]
  - Nasopharyngitis [Unknown]

NARRATIVE: CASE EVENT DATE: 202001
